FAERS Safety Report 8395576-6 (Version None)
Quarter: 2012Q2

REPORT INFORMATION
  Report Type: 
  Country: None (occurrence: None)
  Receive Date: 20120530
  Receipt Date: 20110916
  Transmission Date: 20120825
  Serious: No
  Sender: FDA-Public Use
  Company Number: US-GLAXOSMITHKLINE-A0944974A

PATIENT
  Age: 87 Year
  Sex: Female

DRUGS (3)
  1. GABAPENTIN [Concomitant]
  2. HYDROCODONE BITARTRATE [Concomitant]
  3. VENTOLIN [Suspect]
     Indication: CHRONIC OBSTRUCTIVE PULMONARY DISEASE
     Dosage: 2PUFF VARIABLE DOSE
     Route: 055
     Dates: start: 20090101

REACTIONS (5)
  - COUGH [None]
  - THERAPEUTIC RESPONSE DECREASED [None]
  - PRODUCT QUALITY ISSUE [None]
  - OROPHARYNGEAL PAIN [None]
  - PRODUCTIVE COUGH [None]
